FAERS Safety Report 16990839 (Version 2)
Quarter: 2019Q4

REPORT INFORMATION
  Report Type: Report from Study
  Country: IT (occurrence: IT)
  Receive Date: 20191104
  Receipt Date: 20191204
  Transmission Date: 20200122
  Serious: Yes (Other)
  Sender: FDA-Public Use
  Company Number: IT-MYLANLABS-2019M1104946

PATIENT
  Age: 89 Year
  Sex: Female
  Weight: 50 kg

DRUGS (7)
  1. FOLIDAR [Concomitant]
     Dosage: 1 DOSAGE FORM
     Route: 048
     Dates: start: 20180525
  2. DOMPERIDONE [Concomitant]
     Active Substance: DOMPERIDONE
     Dosage: 30 MILLIGRAM
     Route: 048
     Dates: start: 20180518
  3. FERLIXIT [Concomitant]
     Active Substance: SODIUM FERRIC GLUCONATE COMPLEX
     Dosage: 1 DOSAGE FORM
     Route: 048
     Dates: start: 20180904
  4. NATECAL D3 [Concomitant]
     Active Substance: CALCIUM CARBONATE\CHOLECALCIFEROL
     Dosage: 1 DOSAGE FORM
     Route: 048
     Dates: start: 20180518
  5. FUROSEMIDE. [Suspect]
     Active Substance: FUROSEMIDE
     Indication: HYPERTENSION
     Dosage: 12.5 MILLIGRAM, QD
     Route: 048
     Dates: start: 20180518
  6. BISOPROLOL FUMARATE. [Suspect]
     Active Substance: BISOPROLOL FUMARATE
     Indication: HYPERTENSION
     Dosage: 2.5 MILLIGRAM, QD
     Route: 048
     Dates: start: 20180518
  7. OMEPRAZOLE. [Concomitant]
     Active Substance: OMEPRAZOLE
     Dosage: 20 MILLIGRAM
     Route: 048
     Dates: start: 20180518

REACTIONS (3)
  - Hypertension [Recovered/Resolved]
  - Drug ineffective [Recovered/Resolved]
  - Depressed level of consciousness [Recovered/Resolved]

NARRATIVE: CASE EVENT DATE: 20181002
